FAERS Safety Report 9504160 (Version 7)
Quarter: 2014Q3

REPORT INFORMATION
  Report Type: Spontaneous
  Country: US (occurrence: US)
  Receive Date: 20130906
  Receipt Date: 20140904
  Transmission Date: 20150326
  Serious: Yes (Hospitalization, Disabling, Other)
  Sender: FDA-Public Use
  Company Number: US-009507513-1203USA03470

PATIENT
  Sex: Female
  Weight: 70.3 kg

DRUGS (5)
  1. SPIRIVA [Concomitant]
     Active Substance: TIOTROPIUM BROMIDE MONOHYDRATE
     Indication: CHRONIC OBSTRUCTIVE PULMONARY DISEASE
     Dosage: UNK
     Dates: start: 2003
  2. FOSAMAX [Suspect]
     Active Substance: ALENDRONATE SODIUM
     Indication: OSTEOPOROSIS
     Dosage: 70 MG, UNK
     Route: 048
     Dates: start: 2005, end: 2008
  3. FOSAMAX [Suspect]
     Active Substance: ALENDRONATE SODIUM
     Dosage: 70 MG, UNK
     Route: 048
     Dates: start: 20080522, end: 2009
  4. ALENDRONATE SODIUM. [Suspect]
     Active Substance: ALENDRONATE SODIUM
     Indication: OSTEOPOROSIS
     Dosage: 70 MG, UNK
     Route: 048
     Dates: start: 2005, end: 2008
  5. ALENDRONATE SODIUM. [Suspect]
     Active Substance: ALENDRONATE SODIUM
     Dosage: 70 MG, UNK
     Route: 048
     Dates: start: 2008, end: 2009

REACTIONS (33)
  - Femur fracture [Unknown]
  - Hyperglycaemia [Unknown]
  - Osteoporosis [Unknown]
  - Multiple fractures [Unknown]
  - Femoral neck fracture [Unknown]
  - Hypoalbuminaemia [Unknown]
  - Adverse event [Unknown]
  - Blood cholesterol increased [Unknown]
  - Hypotension [Unknown]
  - Thrombocytopenia [Unknown]
  - Fracture nonunion [Unknown]
  - Femur fracture [Unknown]
  - Bone density decreased [Unknown]
  - Gait disturbance [Recovering/Resolving]
  - Bursitis [Unknown]
  - Rib fracture [Unknown]
  - Hypokalaemia [Unknown]
  - Femur fracture [Unknown]
  - Hip deformity [Unknown]
  - Tonsillectomy [Unknown]
  - Medical device removal [Unknown]
  - Osteoarthritis [Unknown]
  - Intramedullary rod insertion [Unknown]
  - Asthenia [Recovering/Resolving]
  - Essential hypertension [Unknown]
  - Arthralgia [Not Recovered/Not Resolved]
  - Open reduction of fracture [Unknown]
  - Oophorectomy [Unknown]
  - Injury [Unknown]
  - Cardiac disorder [Unknown]
  - Device issue [Unknown]
  - Cardiac failure congestive [Unknown]
  - Anaemia [Unknown]

NARRATIVE: CASE EVENT DATE: 2005
